FAERS Safety Report 5620906-5 (Version None)
Quarter: 2008Q1

REPORT INFORMATION
  Report Type: 
  Country: None (occurrence: None)
  Receive Date: 20080208
  Receipt Date: 20080128
  Transmission Date: 20080703
  Serious: Yes (Hospitalization, Other)
  Sender: FDA-Public Use
  Company Number: GB-PFIZER INC-2008001213

PATIENT
  Sex: Male

DRUGS (3)
  1. CHANTIX [Suspect]
     Indication: EX-SMOKER
     Route: 048
     Dates: start: 20071213, end: 20071227
  2. AMOXICILLIN [Concomitant]
     Route: 048
     Dates: start: 20071213, end: 20071220
  3. DIPROBASE, UNSPECIFIED [Concomitant]

REACTIONS (2)
  - SKIN EXFOLIATION [None]
  - URTICARIA [None]
